FAERS Safety Report 5113211-7 (Version None)
Quarter: 2006Q3

REPORT INFORMATION
  Report Type: 
  Country: None (occurrence: None)
  Receive Date: 20060920
  Receipt Date: 20060831
  Transmission Date: 20061208
  Serious: Yes (Hospitalization, Other)
  Sender: FDA-Public Use
  Company Number: US200609000701

PATIENT
  Age: 43 Year
  Sex: Female

DRUGS (4)
  1. ZYPREXA [Suspect]
     Indication: DEPRESSION
     Dosage: 20 MG, DAILY (1/D),
     Dates: start: 20040101
  2. DEPAKOTE [Concomitant]
  3. ZOLOFT [Concomitant]
  4. NORTRIPTYLINE HCL [Concomitant]

REACTIONS (3)
  - BRAIN DAMAGE [None]
  - COMA [None]
  - OVERDOSE [None]
